FAERS Safety Report 12568870 (Version 1)
Quarter: 2016Q3

REPORT INFORMATION
  Report Type: Spontaneous
  Country: US (occurrence: US)
  Receive Date: 20160719
  Receipt Date: 20160719
  Transmission Date: 20161109
  Serious: Yes (Other)
  Sender: FDA-Public Use
  Company Number: US-BTG INTERNATIONAL LTD-BTG00775

PATIENT

DRUGS (1)
  1. CROFAB [Suspect]
     Active Substance: CROTALIDAE POLYVALENT IMMUNE FAB (OVINE)
     Indication: VENOMOUS BITE
     Dosage: 32 ANTI-VENIN TREATMENTS
     Dates: start: 201602

REACTIONS (2)
  - Feeling abnormal [Unknown]
  - Surgery [Unknown]

NARRATIVE: CASE EVENT DATE: 2015
